FAERS Safety Report 13695166 (Version 1)
Quarter: 2017Q2

REPORT INFORMATION
  Report Type: Spontaneous
  Country: US (occurrence: US)
  Receive Date: 20170627
  Receipt Date: 20170627
  Transmission Date: 20170830
  Serious: Yes (Other)
  Sender: FDA-Public Use
  Company Number: US-BAYER-2017-123462

PATIENT
  Age: 13 Year
  Sex: Female

DRUGS (6)
  1. SORAFENIB (RAF KINASE INHIBITOR) [Suspect]
     Active Substance: SORAFENIB
     Indication: HEPATOCELLULAR CARCINOMA
     Dosage: 300 MG/M2/D
     Route: 048
  2. EVEROLIMUS [Concomitant]
     Active Substance: EVEROLIMUS
  3. SORAFENIB (RAF KINASE INHIBITOR) [Suspect]
     Active Substance: SORAFENIB
     Indication: HEPATOCELLULAR CARCINOMA
     Dosage: 270 MG/M2/D
     Route: 048
  4. CISPLATIN. [Concomitant]
     Active Substance: CISPLATIN
     Dosage: TOTAL CUMULATIVE DOSE OF 320 MG/M2
  5. TACROLIMUS. [Concomitant]
     Active Substance: TACROLIMUS
  6. DOXORUBICIN [Concomitant]
     Active Substance: DOXORUBICIN
     Dosage: TOTAL CUMULATIVE DOSE OF 240 MG/M2

REACTIONS (1)
  - Hypertension [None]
